FAERS Safety Report 4881550-0 (Version None)
Quarter: 2006Q1

REPORT INFORMATION
  Report Type: 
  Country: None (occurrence: None)
  Receive Date: 20060116
  Receipt Date: 20060116
  Transmission Date: 20060701
  Serious: Yes (Other)
  Sender: FDA-Public Use
  Company Number: DE-GLAXOSMITHKLINE-D0048451A

PATIENT
  Sex: Male

DRUGS (1)
  1. MALARONE [Suspect]
     Route: 065

REACTIONS (2)
  - ALOPECIA [None]
  - PSORIASIS [None]
